FAERS Safety Report 5513884-0 (Version None)
Quarter: 2007Q4

REPORT INFORMATION
  Report Type: 
  Country: None (occurrence: None)
  Receive Date: 20071109
  Receipt Date: 20071109
  Transmission Date: 20080405
  Serious: Yes (Hospitalization)
  Sender: FDA-Public Use
  Company Number: None

PATIENT
  Sex: Male
  Weight: 59.8748 kg

DRUGS (3)
  1. ACYCLOVIR [Suspect]
     Indication: ENCEPHALITIS
     Dosage: 700 MG Q 8 HOURS IV BOLUS
     Route: 040
     Dates: start: 20071106, end: 20071106
  2. ACYCLOVIR [Suspect]
  3. SODIUM CHLORIDE [Concomitant]

REACTIONS (1)
  - ANAPHYLACTIC REACTION [None]
